FAERS Safety Report 4349082-6 (Version None)
Quarter: 2004Q2

REPORT INFORMATION
  Report Type: 
  Country: None (occurrence: None)
  Receive Date: 20040423
  Receipt Date: 20040414
  Transmission Date: 20050107
  Serious: Yes (Other)
  Sender: FDA-Public Use
  Company Number: JP-SHR-04-021872

PATIENT
  Age: 13 Year
  Sex: Female
  Weight: 50 kg

DRUGS (5)
  1. FLUDARA [Suspect]
     Indication: BONE MARROW TRANSPLANT
     Dosage: 35 MG, 1X/DAY, IV DRIP
     Route: 041
     Dates: start: 20020217, end: 20020220
  2. CYCLOPHOSPHAMIDE [Suspect]
     Indication: BONE MARROW TRANSPLANT
     Dosage: 1900 MG, 1X/DAY, IV DRIP
     Route: 041
     Dates: start: 20020217, end: 20020220
  3. THYMOGLOBULIN [Concomitant]
  4. METHOTREXATE SODIUM [Concomitant]
  5. FK 506 (TACROLIMUS) [Concomitant]

REACTIONS (8)
  - APLASTIC ANAEMIA [None]
  - CARDIAC FAILURE [None]
  - CARDIAC TAMPONADE [None]
  - CARDIOMYOPATHY [None]
  - DYSPNOEA [None]
  - GRAFT VERSUS HOST DISEASE [None]
  - OLIGURIA [None]
  - PERICARDIAL EFFUSION [None]
